FAERS Safety Report 11752578 (Version 7)
Quarter: 2017Q3

REPORT INFORMATION
  Report Type: Report from Study
  Country: IT (occurrence: IT)
  Receive Date: 20151119
  Receipt Date: 20170915
  Transmission Date: 20171127
  Serious: Yes (Hospitalization, Other)
  Sender: FDA-Public Use
  Company Number: IT-ROCHE-1662712

PATIENT
  Age: 35 Year
  Sex: Female
  Weight: 40 kg

DRUGS (8)
  1. VEMURAFENIB. [Suspect]
     Active Substance: VEMURAFENIB
     Indication: MALIGNANT MELANOMA
     Dosage: 56 TABLETS BLISTER PACK
     Route: 048
     Dates: start: 20150120, end: 20150420
  2. RANITIDIN [Concomitant]
     Active Substance: RANITIDINE HYDROCHLORIDE
     Route: 042
  3. ORAMORPH [Concomitant]
     Active Substance: MORPHINE SULFATE
     Dosage: 20MG/ML, 20 ML BOTTLE WITH DROPPER
     Route: 048
  4. PORTOLAC [Concomitant]
     Active Substance: LACTITOL
     Dosage: 20 SACHETS OF 10G POWDER
     Route: 048
  5. SERENASE (ITALY) [Concomitant]
     Active Substance: HALOPERIDOL
     Dosage: 2 MG/ML, 1 15 ML BOTTLE
     Route: 048
  6. LASIX [Concomitant]
     Active Substance: FUROSEMIDE
     Dosage: 30 TABLETS
     Route: 048
  7. PIPERACILLIN/TAZOBACTAM [Concomitant]
     Active Substance: PIPERACILLIN SODIUM\TAZOBACTAM SODIUM
     Route: 042
  8. DEPAKIN [Concomitant]
     Active Substance: VALPROATE SODIUM
     Dosage: 200 MG/ML, 40 ML BOTTLE
     Route: 048

REACTIONS (18)
  - Diarrhoea [Recovered/Resolved]
  - Deafness [Unknown]
  - Pollakiuria [Recovered/Resolved]
  - Back pain [Recovered/Resolved]
  - Blood immunoglobulin G decreased [Unknown]
  - Rash [Recovered/Resolved]
  - Insomnia [Recovered/Resolved]
  - Diplopia [Unknown]
  - Parosmia [Unknown]
  - Mucosal inflammation [Recovered/Resolved]
  - Hypokalaemia [Unknown]
  - Pancytopenia [Recovered/Resolved]
  - Pyrexia [Recovered/Resolved]
  - Headache [Recovered/Resolved]
  - Hallucination [Recovered/Resolved]
  - Anaemia [Recovered/Resolved]
  - Dyspnoea [Recovered/Resolved]
  - Gastritis [Unknown]

NARRATIVE: CASE EVENT DATE: 20150330
